FAERS Safety Report 9775726 (Version 1)
Quarter: 2013Q4

REPORT INFORMATION
  Report Type: Report from Study
  Country: DE (occurrence: CO)
  Receive Date: 20131220
  Receipt Date: 20131220
  Transmission Date: 20140711
  Serious: Yes (Death, Hospitalization)
  Sender: FDA-Public Use
  Company Number: DE-ACTELION-A-NJ2013-92758

PATIENT
  Age: 38 Year
  Sex: Female

DRUGS (1)
  1. VENTAVIS [Suspect]
     Indication: PULMONARY HYPERTENSION
     Dosage: UNK
     Route: 055
     Dates: start: 20130805, end: 20131208

REACTIONS (4)
  - General physical health deterioration [Fatal]
  - Limb injury [Recovering/Resolving]
  - Oedema peripheral [Recovering/Resolving]
  - Abdominal distension [Unknown]
